FAERS Safety Report 21380595 (Version 1)
Quarter: 2022Q3

REPORT INFORMATION
  Report Type: Report from Study
  Country: EG (occurrence: EG)
  Receive Date: 20220927
  Receipt Date: 20220927
  Transmission Date: 20221027
  Serious: Yes (Hospitalization, Other)
  Sender: FDA-Public Use
  Company Number: EG-NOVARTISPH-NVSC2022EG215111

PATIENT
  Sex: Female

DRUGS (6)
  1. GILENYA [Suspect]
     Active Substance: FINGOLIMOD HYDROCHLORIDE
     Indication: Multiple sclerosis
     Dosage: 0.5 MG, QD
     Route: 048
     Dates: start: 2016, end: 202202
  2. BENFOTIAMINE\CYANOCOBALAMIN\PYRIDOXINE HYDROCHLORIDE [Concomitant]
     Active Substance: BENFOTIAMINE\CYANOCOBALAMIN\PYRIDOXINE HYDROCHLORIDE
     Indication: Supplementation therapy
     Dosage: UNK, QD
     Route: 065
     Dates: start: 2011
  3. NEUROTON [Concomitant]
     Indication: Supplementation therapy
     Dosage: UNK, QD
     Route: 065
     Dates: start: 2011
  4. DEPOVIT B12 [Concomitant]
     Indication: Supplementation therapy
     Dosage: UNK, SOMETIMES ONE INJECTION EVERY OTHER DAY AND SOMETIMES  EVERY TWO DAYS
     Route: 065
     Dates: start: 2011
  5. NEUROVIT [Concomitant]
     Indication: Supplementation therapy
     Dosage: UNK, SOMETIMES ONE INJECTION EVERY OTHER DAY AND SOMETIMES  EVERY TWO DAYS
     Route: 065
     Dates: start: 2011
  6. SOFENACIN [Concomitant]
     Indication: Urinary incontinence
     Dosage: 1 DOSAGE FORM, QD
     Route: 048
     Dates: start: 2020

REACTIONS (16)
  - Accident [Not Recovered/Not Resolved]
  - Peripheral swelling [Not Recovered/Not Resolved]
  - Pain in extremity [Not Recovered/Not Resolved]
  - Lower limb fracture [Not Recovered/Not Resolved]
  - Multiple sclerosis relapse [Recovered/Resolved]
  - Limb discomfort [Recovered/Resolved]
  - Limb discomfort [Not Recovered/Not Resolved]
  - Memory impairment [Not Recovered/Not Resolved]
  - Chest pain [Recovered/Resolved]
  - Bone pain [Unknown]
  - Suffocation feeling [Recovered/Resolved]
  - Vitamin D decreased [Unknown]
  - Osteoporosis [Not Recovered/Not Resolved]
  - Insomnia [Not Recovered/Not Resolved]
  - Therapy non-responder [Recovered/Resolved]
  - Drug ineffective [Unknown]

NARRATIVE: CASE EVENT DATE: 20160101
